FAERS Safety Report 5118328-9 (Version None)
Quarter: 2006Q4

REPORT INFORMATION
  Report Type: 
  Country: None (occurrence: None)
  Receive Date: 20061002
  Receipt Date: 20060925
  Transmission Date: 20070319
  Serious: Yes (Death, Congenital Anomaly, Other)
  Sender: FDA-Public Use
  Company Number: US-AVENTIS-200618084US

PATIENT
  Sex: Female

DRUGS (1)
  1. LOVENOX [Suspect]
     Indication: FACTOR V LEIDEN MUTATION
     Route: 058
     Dates: start: 20050101

REACTIONS (6)
  - DRUG EXPOSURE DURING PREGNANCY [None]
  - FOETAL GROWTH RETARDATION [None]
  - INTRA-UTERINE DEATH [None]
  - STOMACH DISCOMFORT [None]
  - TRISOMY 21 [None]
  - ULTRASOUND ANTENATAL SCREEN ABNORMAL [None]
